FAERS Safety Report 19702702 (Version 1)
Quarter: 2021Q3

REPORT INFORMATION
  Report Type: Spontaneous
  Country: DE (occurrence: DE)
  Receive Date: 20210815
  Receipt Date: 20210815
  Transmission Date: 20211014
  Serious: Yes (Other)
  Sender: FDA-Public Use
  Company Number: DE-CELLTRION INC.-2021DE010745

PATIENT

DRUGS (4)
  1. INFLIXIMAB (UNKNOWN) [Suspect]
     Active Substance: INFLIXIMAB
     Indication: TAKAYASU^S ARTERITIS
     Dosage: UNK
     Route: 065
     Dates: start: 201612
  2. TOCILIZUMAB. [Suspect]
     Active Substance: TOCILIZUMAB
     Indication: TAKAYASU^S ARTERITIS
     Dosage: UNKNOWN. RE?STARTED AGAIN ON AN UNKNOWN DATE OF AUG?2018
     Route: 042
  3. LEF (LEFLUNOMIDE) [Suspect]
     Active Substance: LEFLUNOMIDE
     Indication: TAKAYASU^S ARTERITIS
     Dosage: UNKNOWN
     Route: 065
     Dates: start: 2019
  4. MTX [METHOTREXATE] [Concomitant]
     Active Substance: METHOTREXATE SODIUM
     Indication: TAKAYASU^S ARTERITIS
     Dosage: UNKNOWN
     Route: 065

REACTIONS (4)
  - Neuropathy peripheral [Unknown]
  - Condition aggravated [Recovering/Resolving]
  - Takayasu^s arteritis [Recovering/Resolving]
  - Off label use [Unknown]
